FAERS Safety Report 25488774 (Version 7)
Quarter: 2025Q4

REPORT INFORMATION
  Report Type: Report from Study
  Country: US (occurrence: US)
  Receive Date: 20250627
  Receipt Date: 20251016
  Transmission Date: 20260117
  Serious: Yes (Hospitalization)
  Sender: EISAI
  Company Number: US-Eisai-EC-2025-191630

PATIENT
  Age: 64 Year
  Sex: Female
  Weight: 84 kg

DRUGS (13)
  1. LENVIMA [Suspect]
     Active Substance: LENVATINIB
     Indication: Endometrial cancer
     Route: 048
     Dates: start: 202506, end: 202506
  2. LENVIMA [Suspect]
     Active Substance: LENVATINIB
     Route: 048
     Dates: start: 20250630, end: 202507
  3. LENVIMA [Suspect]
     Active Substance: LENVATINIB
     Route: 048
     Dates: start: 202508, end: 202508
  4. LENVIMA [Suspect]
     Active Substance: LENVATINIB
     Route: 048
     Dates: start: 2025
  5. ACIDOPHILUS [Concomitant]
     Active Substance: LACTOBACILLUS ACIDOPHILUS
  6. CALCIUM [Concomitant]
     Active Substance: CALCIUM
  7. CEFDINIR [Concomitant]
     Active Substance: CEFDINIR
  8. KEYTRUDA [Concomitant]
     Active Substance: PEMBROLIZUMAB
     Indication: Endometrial cancer
     Dosage: DOSE AND FREQ UNK
     Route: 042
  9. LOVENOX [Concomitant]
     Active Substance: ENOXAPARIN SODIUM
  10. MAGNESIUM [Concomitant]
     Active Substance: MAGNESIUM
  11. METOPROLOL [Concomitant]
     Active Substance: METOPROLOL
  12. SODIUM BENZOATE [Concomitant]
     Active Substance: SODIUM BENZOATE
  13. SODIUM CHLORIDE [Concomitant]
     Active Substance: SODIUM CHLORIDE

REACTIONS (9)
  - Blood sodium decreased [Recovered/Resolved]
  - Rectal haemorrhage [Recovered/Resolved]
  - Abdominal pain upper [Recovered/Resolved]
  - Urinary tract infection [Recovered/Resolved]
  - Rash [Unknown]
  - Abdominal rigidity [Unknown]
  - Fatigue [Recovering/Resolving]
  - Abdominal pain lower [Unknown]
  - Blood iron decreased [Recovered/Resolved]

NARRATIVE: CASE EVENT DATE: 20250601
